FAERS Safety Report 9670887 (Version 2)
Quarter: 2013Q4

REPORT INFORMATION
  Report Type: Report from Study
  Country: MX (occurrence: MX)
  Receive Date: 20131106
  Receipt Date: 20131112
  Transmission Date: 20140711
  Serious: Yes (Other)
  Sender: FDA-Public Use
  Company Number: PHHY2013MX125489

PATIENT
  Age: 64 Year
  Sex: Male
  Weight: 60 kg

DRUGS (3)
  1. EXFORGE HCT [Suspect]
     Indication: HYPERTENSION
     Dosage: 1 DF, (320 MG VALS /10 MG AMLO /25 MG HCTZ) DAILY
     Route: 048
     Dates: start: 20130408, end: 201305
  2. EXFORGE HCT [Suspect]
     Dosage: 0.5 DF, (320 MG VALS /10 MG AMLO /25 MG HCTZ) DAILY
     Route: 048
     Dates: start: 201305, end: 201305
  3. EXFORGE HCT [Suspect]
     Dosage: THIRD OF THE TABLET (0.75 DF) (320 MG VALS /10 MG AMLO /25 MG HCTZ) DAILY
     Route: 048
     Dates: start: 201305

REACTIONS (3)
  - Non-Hodgkin^s lymphoma [Not Recovered/Not Resolved]
  - Weight decreased [Not Recovered/Not Resolved]
  - Wrong technique in drug usage process [Not Recovered/Not Resolved]
